FAERS Safety Report 21484099 (Version 1)
Quarter: 2022Q4

REPORT INFORMATION
  Report Type: Spontaneous
  Country: FR (occurrence: FR)
  Receive Date: 20221020
  Receipt Date: 20221020
  Transmission Date: 20230113
  Serious: Yes (Other)
  Sender: FDA-Public Use
  Company Number: FR-AMGEN-FRASP2022177171

PATIENT

DRUGS (1)
  1. ADALIMUMAB [Suspect]
     Active Substance: ADALIMUMAB
     Indication: Crohn^s disease
     Dosage: UNK
     Route: 065

REACTIONS (4)
  - Crohn^s disease [Unknown]
  - Therapeutic product effect decreased [Unknown]
  - Drug intolerance [Unknown]
  - Drug ineffective [Unknown]
